FAERS Safety Report 10867039 (Version 1)
Quarter: 2015Q1

REPORT INFORMATION
  Report Type: Spontaneous
  Country: US (occurrence: US)
  Receive Date: 20150225
  Receipt Date: 20150225
  Transmission Date: 20150721
  Serious: No
  Sender: FDA-Public Use
  Company Number: US-TEVA-540586USA

PATIENT
  Sex: Female

DRUGS (1)
  1. QVAR [Suspect]
     Active Substance: BECLOMETHASONE DIPROPIONATE
     Route: 048
     Dates: start: 2014

REACTIONS (3)
  - Stomatitis [Unknown]
  - Oral candidiasis [Not Recovered/Not Resolved]
  - Uvulitis [Unknown]
